FAERS Safety Report 6037317-3 (Version None)
Quarter: 2009Q1

REPORT INFORMATION
  Report Type: 
  Country: None (occurrence: None)
  Receive Date: 20090114
  Receipt Date: 20090107
  Transmission Date: 20090719
  Serious: Yes (Hospitalization, Other)
  Sender: FDA-Public Use
  Company Number: PHHY2009GT00798

PATIENT
  Age: 77 Year
  Sex: Female

DRUGS (3)
  1. EXFORGE [Suspect]
     Indication: HYPERTENSION
     Dosage: 5/160MG PER DAY
     Route: 048
  2. GLICAZET [Concomitant]
     Dosage: HALF A TABLET PER DAY
     Route: 048
  3. GABICTAL [Concomitant]
     Dosage: 0.5 DF, Q12H
     Route: 048

REACTIONS (6)
  - LEUKOCYTOSIS [None]
  - LUMBAR PUNCTURE [None]
  - MENINGITIS [None]
  - MUSCULOSKELETAL STIFFNESS [None]
  - NECK PAIN [None]
  - URINARY TRACT INFECTION [None]
